FAERS Safety Report 5468238-2 (Version None)
Quarter: 2007Q3

REPORT INFORMATION
  Report Type: 
  Country: None (occurrence: None)
  Receive Date: 20070926
  Receipt Date: 20070914
  Transmission Date: 20080115
  Serious: Yes (Hospitalization)
  Sender: FDA-Public Use
  Company Number: JP-ASTRAZENECA-2007SE04514

PATIENT
  Age: 34593 Day
  Sex: Female
  Weight: 36 kg

DRUGS (5)
  1. CANDESARTAN CILEXETIL [Suspect]
     Indication: CARDIOVASCULAR EVENT PROPHYLAXIS
     Route: 048
     Dates: start: 20070727, end: 20070728
  2. CANDESARTAN CILEXETIL [Suspect]
     Route: 048
     Dates: start: 20070803, end: 20070816
  3. LASIX [Concomitant]
     Route: 048
     Dates: start: 20070409
  4. LANIRAPID [Concomitant]
     Route: 048
     Dates: start: 20070409
  5. KALGUT [Concomitant]
     Route: 048
     Dates: start: 20070409

REACTIONS (2)
  - EMBOLIC STROKE [None]
  - RHABDOMYOLYSIS [None]
